FAERS Safety Report 9138836 (Version 1)
Quarter: 2013Q1

REPORT INFORMATION
  Report Type: Other
  Country: US (occurrence: US)
  Receive Date: 20130305
  Receipt Date: 20130305
  Transmission Date: 20140127
  Serious: No
  Sender: FDA-Public Use
  Company Number: US-ENDO PHARMACEUTICALS INC.-PERC20120132

PATIENT
  Sex: Female

DRUGS (2)
  1. PERCOCET [Suspect]
     Indication: LIMB OPERATION
     Dosage: UNKNOWN
     Route: 048
     Dates: start: 2012, end: 2012
  2. SOLIRIS [Suspect]
     Indication: HAEMOLYTIC URAEMIC SYNDROME
     Dosage: UNK

REACTIONS (2)
  - Suture rupture [Unknown]
  - Vomiting [Unknown]
